FAERS Safety Report 9149113 (Version 2)
Quarter: 2013Q1

REPORT INFORMATION
  Report Type: Report from Study
  Country: US (occurrence: US)
  Receive Date: 20130308
  Receipt Date: 20130311
  Transmission Date: 20140127
  Serious: Yes (Hospitalization)
  Sender: FDA-Public Use
  Company Number: US-ABBOTT-13P-163-1056409-00

PATIENT
  Age: 54 None
  Sex: Female
  Weight: 44.49 kg

DRUGS (6)
  1. HUMIRA [Suspect]
     Indication: CROHN^S DISEASE
     Dates: start: 2011, end: 201212
  2. LEVOTHYROXINE [Concomitant]
     Indication: HYPOTHYROIDISM
  3. VESICARE [Concomitant]
     Indication: HYPERTONIC BLADDER
  4. TOPAMAX [Concomitant]
     Indication: MIGRAINE
  5. IMITREX [Concomitant]
     Indication: MIGRAINE
  6. QUESTRAN [Concomitant]
     Indication: CROHN^S DISEASE

REACTIONS (18)
  - Pleurisy [Recovering/Resolving]
  - Diarrhoea [Not Recovered/Not Resolved]
  - Immune system disorder [Not Recovered/Not Resolved]
  - Clostridium difficile infection [Recovering/Resolving]
  - Back pain [Recovered/Resolved]
  - Gastric disorder [Recovering/Resolving]
  - Feeling abnormal [Not Recovered/Not Resolved]
  - Musculoskeletal pain [Recovering/Resolving]
  - Nasopharyngitis [Recovered/Resolved]
  - Nasal congestion [Recovered/Resolved]
  - Sinusitis [Recovered/Resolved]
  - Eye swelling [Recovered/Resolved]
  - Ear discomfort [Recovered/Resolved]
  - Pyrexia [Recovered/Resolved]
  - Pulmonary congestion [Recovered/Resolved]
  - Dyspnoea [Recovered/Resolved]
  - Chest discomfort [Recovered/Resolved]
  - Upper respiratory tract infection [Recovered/Resolved]
